FAERS Safety Report 8827922 (Version 6)
Quarter: 2013Q1

REPORT INFORMATION
  Report Type: Spontaneous
  Country: US (occurrence: US)
  Receive Date: 20121008
  Receipt Date: 20130215
  Transmission Date: 20140127
  Serious: Yes (Hospitalization, Other)
  Sender: FDA-Public Use
  Company Number: US-JNJFOC-20121001787

PATIENT
  Age: 45 Year
  Sex: Female
  Weight: 132.45 kg

DRUGS (38)
  1. REMICADE [Suspect]
     Indication: RHEUMATOID ARTHRITIS
     Route: 042
     Dates: start: 20080204
  2. REMICADE [Suspect]
     Indication: RHEUMATOID ARTHRITIS
     Route: 042
     Dates: start: 20080326
  3. REMICADE [Suspect]
     Indication: RHEUMATOID ARTHRITIS
     Route: 042
     Dates: start: 20071220
  4. REMICADE [Suspect]
     Indication: RHEUMATOID ARTHRITIS
     Route: 042
     Dates: start: 20081105
  5. REMICADE [Suspect]
     Indication: RHEUMATOID ARTHRITIS
     Route: 042
     Dates: start: 20081110
  6. REMICADE [Suspect]
     Indication: RHEUMATOID ARTHRITIS
     Route: 042
     Dates: start: 20090113
  7. REMICADE [Suspect]
     Indication: RHEUMATOID ARTHRITIS
     Route: 042
     Dates: start: 20090211
  8. REMICADE [Suspect]
     Indication: RHEUMATOID ARTHRITIS
     Route: 042
     Dates: start: 20090317
  9. REMICADE [Suspect]
     Indication: RHEUMATOID ARTHRITIS
     Route: 042
     Dates: start: 20090421
  10. ANTIBIOTIC NOS [Suspect]
     Indication: PRODUCT USED FOR UNKNOWN INDICATION
     Route: 065
  11. METHOTREXATE [Suspect]
     Indication: RHEUMATOID ARTHRITIS
     Route: 065
     Dates: end: 200904
  12. PLAQUENIL [Suspect]
     Indication: RHEUMATOID ARTHRITIS
     Route: 065
  13. GUAIFENESIN [Concomitant]
     Dosage: 100-10 MG/5ML
     Route: 066
  14. CLONIDINE HYDROCHLORIDE [Concomitant]
     Indication: BLOOD PRESSURE
     Route: 048
  15. LEXAPRO [Concomitant]
     Indication: DEPRESSION
     Route: 065
  16. SEROQUEL [Concomitant]
     Indication: DEPRESSION
     Route: 048
  17. OMEPRAZOLE [Concomitant]
     Route: 048
  18. IBUPROFEN [Concomitant]
     Route: 048
  19. PROPOXYPHENE [Concomitant]
     Indication: PAIN
     Route: 048
  20. NASACORT [Concomitant]
     Route: 045
  21. ATENOLOL [Concomitant]
     Route: 048
  22. PHENERGAN [Concomitant]
     Indication: NAUSEA
     Route: 065
  23. FOLIC ACID [Concomitant]
     Route: 048
  24. REQUIP [Concomitant]
     Indication: RESTLESS LEGS SYNDROME
     Route: 048
  25. METRONIDAZOLE [Concomitant]
     Route: 065
  26. VANCOCIN HYDROCHLORIDE [Concomitant]
     Route: 048
  27. BENTYL [Concomitant]
     Route: 048
  28. BACTRIM [Concomitant]
     Route: 048
  29. VALCYTE [Concomitant]
     Route: 048
  30. DICYCLOMINE HYDROCHLORIDE [Concomitant]
     Route: 048
  31. SULFAMETHOXAZOLE [Concomitant]
     Route: 048
  32. PREDNISONE [Concomitant]
     Route: 048
  33. SIMVASTATINE [Concomitant]
     Route: 065
  34. ACYCLOVIR [Concomitant]
     Route: 048
  35. ALBUTEROL [Concomitant]
     Dosage: ^DY 3GM/ILLEGIBLE^
     Route: 065
  36. FENOFIBRATE [Concomitant]
     Route: 048
  37. GABAPENTIN [Concomitant]
     Route: 048
  38. DARVOCET N 100 [Concomitant]
     Dosage: ^PRW PW^
     Route: 048

REACTIONS (39)
  - Pneumococcal infection [Unknown]
  - Acute respiratory failure [Unknown]
  - Vomiting [Recovered/Resolved]
  - Clostridium difficile infection [Unknown]
  - Cholecystitis chronic [Unknown]
  - Biliary dyskinesia [Unknown]
  - Fall [Unknown]
  - Back pain [Unknown]
  - Clostridium difficile colitis [Unknown]
  - Upper respiratory tract infection [Unknown]
  - Pneumonia cytomegaloviral [Unknown]
  - Cytomegalovirus infection [Unknown]
  - Cytomegalovirus infection [Unknown]
  - Rheumatoid arthritis [Unknown]
  - Hepatic steatosis [Unknown]
  - Liver function test abnormal [Unknown]
  - Accelerated hypertension [Recovered/Resolved]
  - Head injury [Unknown]
  - Syncope [Recovered/Resolved]
  - Angina pectoris [Recovered/Resolved]
  - Staphylococcal infection [Unknown]
  - Loss of consciousness [Unknown]
  - Arrhythmia [Unknown]
  - Cardiomegaly [Unknown]
  - Felty^s syndrome [Unknown]
  - Leukopenia [Unknown]
  - Infusion related reaction [Unknown]
  - Nausea [Recovered/Resolved]
  - Palpitations [Unknown]
  - Gingival pain [Unknown]
  - Dyspepsia [Unknown]
  - Alopecia [Unknown]
  - Cough [Unknown]
  - Headache [Unknown]
  - Pyrexia [Unknown]
  - Dyspnoea [Unknown]
  - Red blood cell count decreased [Unknown]
  - Hypotension [Unknown]
  - Influenza [Unknown]
